FAERS Safety Report 8620744 (Version 6)
Quarter: 2013Q4

REPORT INFORMATION
  Report Type: Spontaneous
  Country: JP (occurrence: JP)
  Receive Date: 20120619
  Receipt Date: 20131030
  Transmission Date: 20140711
  Serious: Yes (Hospitalization)
  Sender: FDA-Public Use
  Company Number: JP-AMGEN-JPNSP2012036152

PATIENT
  Age: 67 Year
  Sex: Female
  Weight: 69 kg

DRUGS (16)
  1. ENBREL [Suspect]
     Indication: RHEUMATOID ARTHRITIS
     Dosage: 25 MG, 2X/WEEK
     Route: 058
  2. ENBREL [Suspect]
     Dosage: 50 MG, WEEKLY
     Route: 058
     Dates: end: 20120228
  3. MUCOSTA [Concomitant]
     Indication: GASTRITIS PROPHYLAXIS
     Dosage: 100 MG, 3X/DAY
     Route: 048
  4. MAGMITT [Concomitant]
     Indication: CONSTIPATION
     Dosage: 500 MG, 3X/DAY
     Route: 048
  5. SIGMART [Concomitant]
     Indication: ANGINA PECTORIS
     Dosage: 5 MG, 3X/DAY
     Route: 048
  6. BENET [Concomitant]
     Indication: OSTEOPOROSIS
     Dosage: 17.5 MG, WEEKLY
     Route: 048
  7. ONE-ALPHA [Concomitant]
     Indication: OSTEOPOROSIS
     Dosage: 1 UG, 1X/DAY
     Route: 048
  8. AMLODIPINE [Concomitant]
     Indication: HYPERTENSION
     Dosage: 5 MG, 1X/DAY
     Route: 048
  9. LASIX                              /00032601/ [Concomitant]
     Indication: OEDEMA PERIPHERAL
     Dosage: 20 MG, 1X/DAY
     Route: 048
  10. DIOVAN [Concomitant]
     Indication: HYPERTENSION
     Dosage: 80 MG, 1X/DAY
     Route: 048
  11. ZANTAC [Concomitant]
     Indication: GASTRITIS PROPHYLAXIS
     Dosage: 150 MG, 1X/DAY
     Route: 048
  12. ALLOPURINOL [Concomitant]
     Indication: HYPERURICAEMIA
     Dosage: 100 MG, 1X/DAY
     Route: 048
  13. MYSLEE [Concomitant]
     Indication: INSOMNIA
     Dosage: 10 MG, 1X/DAY
     Route: 048
  14. LYRICA [Concomitant]
     Indication: NEURALGIA
     Dosage: 75 MG, 1X/DAY
     Route: 048
  15. LYRICA [Concomitant]
     Indication: NEURALGIA
  16. HOKUNALIN                          /00654902/ [Concomitant]
     Indication: ASTHMA
     Dosage: 2 MG, 2X/DAY
     Route: 061

REACTIONS (2)
  - Henoch-Schonlein purpura nephritis [Recovering/Resolving]
  - Henoch-Schonlein purpura [Recovering/Resolving]
